FAERS Safety Report 4411068-0 (Version None)
Quarter: 2004Q2

REPORT INFORMATION
  Report Type: 
  Country: None (occurrence: None)
  Receive Date: 20040630
  Receipt Date: 20040511
  Transmission Date: 20050107
  Serious: No
  Sender: FDA-Public Use
  Company Number: 04P-163-0260324-00

PATIENT
  Age: 53 Year
  Sex: Female
  Weight: 60.3284 kg

DRUGS (9)
  1. HUMIRA [Suspect]
     Indication: RHEUMATOID ARTHRITIS
     Dosage: 40 MG, 1 IN 2 WK, SUBCUTANEOUS
     Route: 058
     Dates: start: 20040505
  2. NOVOCAIN [Suspect]
     Indication: LOCAL ANAESTHESIA
     Dosage: ONCE, INJECTION
     Dates: start: 20040507, end: 20040507
  3. ANTIBIOTICS [Concomitant]
  4. KARVEA HCT [Concomitant]
  5. CLONIDINE HCL [Concomitant]
  6. METOPROLOL [Concomitant]
  7. LORAZEPAM [Concomitant]
  8. METHOTREXATE SODIUM [Concomitant]
  9. FOLIC ACID [Concomitant]

REACTIONS (1)
  - HEART RATE INCREASED [None]
